FAERS Safety Report 25154907 (Version 3)
Quarter: 2025Q2

REPORT INFORMATION
  Report Type: Report from Study
  Country: US (occurrence: US)
  Receive Date: 20250403
  Receipt Date: 20250625
  Transmission Date: 20250717
  Serious: Yes (Hospitalization, Other)
  Sender: ABBVIE
  Company Number: US-ABBVIE-6114844

PATIENT
  Age: 74 Year
  Sex: Male

DRUGS (1)
  1. IMBRUVICA [Suspect]
     Active Substance: IBRUTINIB
     Indication: Chronic lymphocytic leukaemia
     Route: 048
     Dates: start: 20221122

REACTIONS (18)
  - Diarrhoea [Unknown]
  - Colitis ulcerative [Unknown]
  - Dehydration [Unknown]
  - Renal failure [Unknown]
  - Sepsis [Unknown]
  - Food poisoning [Unknown]
  - Disseminated intravascular coagulation [Unknown]
  - Yersinia infection [Unknown]
  - Haemoglobin decreased [Unknown]
  - Platelet count decreased [Unknown]
  - Illness [Unknown]
  - Normocytic anaemia [Unknown]
  - Large intestinal haemorrhage [Unknown]
  - Taeniasis [Unknown]
  - Haemorrhage [Unknown]
  - Immune thrombocytopenia [Unknown]
  - Iron deficiency [Unknown]
  - Bone marrow disorder [Unknown]

NARRATIVE: CASE EVENT DATE: 20241210
